FAERS Safety Report 4758893-4 (Version None)
Quarter: 2005Q3

REPORT INFORMATION
  Report Type: 
  Country: None (occurrence: None)
  Receive Date: 20050901
  Receipt Date: 20050824
  Transmission Date: 20060218
  Serious: Yes (Hospitalization, Disabling, Other)
  Sender: FDA-Public Use
  Company Number: US-JNJFOC-20050806259

PATIENT
  Sex: Female

DRUGS (3)
  1. DURAGESIC-100 [Suspect]
     Route: 062
  2. LIPITOR [Concomitant]
     Route: 048
  3. HYDROMORPHONE [Concomitant]
     Indication: PAIN
     Dosage: 0.4 MG, TAKES UP TO 6 TIMES PER DAY
     Route: 048

REACTIONS (12)
  - ANKLE FRACTURE [None]
  - BLOOD CHOLESTEROL INCREASED [None]
  - FALL [None]
  - FEMUR FRACTURE [None]
  - FOOT FRACTURE [None]
  - HEAD INJURY [None]
  - HIP FRACTURE [None]
  - ROAD TRAFFIC ACCIDENT [None]
  - SKIN INJURY [None]
  - THERAPEUTIC RESPONSE DECREASED [None]
  - TIBIA FRACTURE [None]
  - WEIGHT DECREASED [None]
